FAERS Safety Report 15376335 (Version 1)
Quarter: 2018Q4

REPORT INFORMATION
  Report Type: Spontaneous
  Country: US (occurrence: US)
  Receive Date: 20180912
  Receipt Date: 20180912
  Transmission Date: 20190204
  Serious: No
  Sender: FDA-Public Use
  Company Number: US-FRESENIUS KABI-FK201809398

PATIENT

DRUGS (3)
  1. WATER FOR INJECTION [Suspect]
     Active Substance: WATER
     Indication: PRODUCT USED FOR UNKNOWN INDICATION
     Route: 065
     Dates: start: 20180719, end: 20180719
  2. XYLOCAINE [Suspect]
     Active Substance: LIDOCAINE HYDROCHLORIDE
     Indication: PRODUCT USED FOR UNKNOWN INDICATION
     Route: 065
     Dates: start: 20180719, end: 20180719
  3. POLY-L-LACTIC ACID [Suspect]
     Active Substance: POLYLACTIDE, L-
     Indication: PRODUCT USED FOR UNKNOWN INDICATION
     Route: 065
     Dates: start: 20180719, end: 20180719

REACTIONS (3)
  - Pain [Unknown]
  - Swelling [Unknown]
  - Inflammation [Unknown]

NARRATIVE: CASE EVENT DATE: 201807
